FAERS Safety Report 6582755-3 (Version None)
Quarter: 2010Q1

REPORT INFORMATION
  Report Type: 
  Country: None (occurrence: None)
  Receive Date: 20100216
  Receipt Date: 20100204
  Transmission Date: 20100710
  Serious: Yes (Other)
  Sender: FDA-Public Use
  Company Number: SE-PFIZER INC-2009306433

PATIENT
  Age: 54 Year
  Sex: Female
  Weight: 85 kg

DRUGS (6)
  1. SUTENT [Suspect]
     Indication: RENAL CANCER METASTATIC
     Dosage: 50 MG, 1X/DAY, 4/2 SCHEDULE
     Route: 048
     Dates: start: 20081006
  2. METOPROLOL [Concomitant]
     Dosage: 100 MG, 1X/DAY
     Dates: start: 20081105
  3. FELODIPINE [Concomitant]
     Dosage: 10 MG, 1X/DAY
     Dates: start: 20090611
  4. LEVOTHYROXINE SODIUM [Concomitant]
     Dosage: 125 MG, 1X/DAY
     Dates: start: 20090714
  5. LASIX [Concomitant]
     Dosage: 60 MG, 1X/DAY
     Dates: start: 20090908
  6. OMEPRAZOL [Concomitant]
     Dosage: 20 MG, 1X/DAY

REACTIONS (2)
  - IMPAIRED HEALING [None]
  - ONYCHOLYSIS [None]
